FAERS Safety Report 11068693 (Version 1)
Quarter: 2015Q2

REPORT INFORMATION
  Report Type: Spontaneous
  Country: US (occurrence: None)
  Receive Date: 20150424
  Receipt Date: 20150424
  Transmission Date: 20150821
  Serious: Yes (Hospitalization)
  Sender: FDA-Public Use
  Company Number: None

PATIENT
  Age: 38 Year
  Sex: Female
  Weight: 90.72 kg

DRUGS (4)
  1. BIOTIN [Concomitant]
     Active Substance: BIOTIN
  2. REGLAN [Suspect]
     Active Substance: METOCLOPRAMIDE HYDROCHLORIDE
     Indication: NAUSEA
     Dosage: GIVEN IN IV 1 TIME INTO A VEIN
     Route: 042
     Dates: start: 20150218, end: 20150218
  3. REGLAN [Suspect]
     Active Substance: METOCLOPRAMIDE HYDROCHLORIDE
     Indication: HEADACHE
     Dosage: GIVEN IN IV 1 TIME INTO A VEIN
     Route: 042
     Dates: start: 20150218, end: 20150218
  4. VITAMIN D [Concomitant]
     Active Substance: CHOLECALCIFEROL

REACTIONS (4)
  - Suicidal ideation [None]
  - Anxiety [None]
  - Depression [None]
  - Hypersensitivity [None]

NARRATIVE: CASE EVENT DATE: 20150218
